FAERS Safety Report 21561978 (Version 2)
Quarter: 2022Q4

REPORT INFORMATION
  Report Type: Report from Study
  Country: US (occurrence: US)
  Receive Date: 20221107
  Receipt Date: 20221219
  Transmission Date: 20230113
  Serious: No
  Sender: FDA-Public Use
  Company Number: US-ABBVIE-4133685

PATIENT
  Sex: Female

DRUGS (2)
  1. HUMIRA [Suspect]
     Active Substance: ADALIMUMAB
     Indication: Ankylosing spondylitis
     Route: 058
     Dates: end: 202210
  2. MODERNA COVID-19 VACCINE [Concomitant]
     Active Substance: ELASOMERAN
     Indication: COVID-19 immunisation
     Dosage: ONCE
     Route: 030

REACTIONS (4)
  - Respiratory tract infection [Recovering/Resolving]
  - Headache [Unknown]
  - Neck pain [Unknown]
  - Infection [Unknown]
